FAERS Safety Report 8212418-X (Version None)
Quarter: 2012Q1

REPORT INFORMATION
  Report Type: 
  Country: None (occurrence: None)
  Receive Date: 20120315
  Receipt Date: 20120306
  Transmission Date: 20120608
  Serious: No
  Sender: FDA-Public Use
  Company Number: US-BAYER-2012-022734

PATIENT
  Age: 23 Year
  Sex: Female

DRUGS (1)
  1. BEYAZ [Suspect]
     Indication: MENSTRUAL CYCLE MANAGEMENT
     Dosage: AS REPORTED: 3MG/0.02MG/0.451MG AND 0.45
     Route: 048

REACTIONS (3)
  - NO ADVERSE EVENT [None]
  - METRORRHAGIA [None]
  - ABDOMINAL PAIN LOWER [None]
